FAERS Safety Report 8378748-6 (Version None)
Quarter: 2012Q2

REPORT INFORMATION
  Report Type: 
  Country: None (occurrence: None)
  Receive Date: 20120522
  Receipt Date: 20110601
  Transmission Date: 20120825
  Serious: Yes (Death)
  Sender: FDA-Public Use
  Company Number: PHHY2011AU52853

PATIENT
  Sex: Female

DRUGS (18)
  1. ZOLEDRONOC ACID [Suspect]
     Indication: OSTEOPOROSIS
     Dosage: 5 MG
     Route: 042
  2. COLOXYL WITH SENNA [Concomitant]
     Dosage: 2 NOCTE
     Route: 048
  3. NEO B12 [Concomitant]
     Dosage: UNK OT, UNK
     Route: 030
  4. OSTELIN [Concomitant]
     Dosage: 1 DF, QD
     Route: 048
  5. HIPREX [Concomitant]
     Dosage: 1 DF, BID
     Route: 048
  6. FENTANYL-100 [Concomitant]
     Dosage: APPLY 1 PATCH AT DIFFERENT LOCATION ON THE SKIN EACH THREE DAYS
     Route: 062
  7. CALCIUM CARBONATE [Concomitant]
     Dosage: 1500 MG, TAKEN AT NIGHT
     Route: 048
  8. MOTILIUM TABLET [Concomitant]
     Dosage: 1 DF, TID, A.C
     Route: 048
  9. OVESTIN [Concomitant]
     Dosage: UNK OT, UNK
  10. BION TEARS [Concomitant]
     Dosage: 1 DRP, QID, BOTH SIDES
  11. ENDEP [Concomitant]
     Dosage: 1 NOCTE
     Route: 048
  12. PANTOPRAZOLE [Concomitant]
     Dosage: 1 DF, QD
     Route: 048
  13. TRIPRIM [Concomitant]
     Dosage: UNK OT, UNK
     Route: 048
  14. ACETAMINOPHEN [Concomitant]
     Dosage: 2 DF, TID
     Route: 048
  15. PROLIA [Concomitant]
     Dosage: UNK OT, UNK
     Route: 058
  16. TEMAZEPAM [Concomitant]
     Dosage: 1 DF, NOCTE
     Route: 048
  17. CELEBREX [Concomitant]
     Dosage: UNK OT, UNK
     Route: 048
  18. PNEUMOVAX 23 [Concomitant]
     Dates: start: 20101105, end: 20101105

REACTIONS (4)
  - DEATH [None]
  - LOSS OF CONSCIOUSNESS [None]
  - MALAISE [None]
  - NASOPHARYNGITIS [None]
